FAERS Safety Report 15155795 (Version 1)
Quarter: 2018Q3

REPORT INFORMATION
  Report Type: Spontaneous
  Country: NL (occurrence: NL)
  Receive Date: 20180717
  Receipt Date: 20180717
  Transmission Date: 20181010
  Serious: Yes (Other)
  Sender: FDA-Public Use
  Company Number: NL-US WORLDMEDS, LLC-STA_00017859

PATIENT
  Age: 70 Year
  Sex: Male

DRUGS (6)
  1. EXELON 6MG [Concomitant]
  2. CLOZAPINE 25MG [Concomitant]
     Active Substance: CLOZAPINE
  3. TASMAR [Concomitant]
     Active Substance: TOLCAPONE
  4. APOMORPHINE HYDROCHLORIDE [Suspect]
     Active Substance: APOMORPHINE HYDROCHLORIDE
     Indication: PARKINSON^S DISEASE
     Dosage: FLOW 3.30ML/H (=8.25MG/H FROM 8.00 TILL 22.59), 0.8ML/H (= 2MG/H FOR 9HRS NIGHT) AND BOLUS 0.99ML/H
     Route: 058
     Dates: start: 20091029
  5. DERMACURE CREAM 20MG/G [Concomitant]
  6. MADOPAR 125 DISP/TBL [Concomitant]

REACTIONS (1)
  - Petit mal epilepsy [Not Recovered/Not Resolved]

NARRATIVE: CASE EVENT DATE: 20150204
